FAERS Safety Report 4519419-3 (Version None)
Quarter: 2004Q4

REPORT INFORMATION
  Report Type: 
  Country: None (occurrence: None)
  Receive Date: 20041202
  Receipt Date: 20041125
  Transmission Date: 20050328
  Serious: Yes (Hospitalization)
  Sender: FDA-Public Use
  Company Number: 200413269GDS

PATIENT
  Age: 64 Year
  Sex: Male
  Weight: 72 kg

DRUGS (12)
  1. ASIPRIN CARDIO (ACETYLSALICYLIC ACID) [Suspect]
     Dosage: 100 MG, TOTAL DAILY, ORAL
     Route: 048
  2. BISOPROLOL FUMARATE [Suspect]
     Dosage: ORAL
     Route: 048
  3. CITALOPRAM [Suspect]
     Dosage: 40 MG, TOTAL DAILY, ORAL
     Route: 048
  4. MIRTAZAPINE [Suspect]
     Indication: SLEEP DISORDER
     Dosage: 15 MG, TOTAL DAILY, ORAL
     Route: 048
     Dates: start: 20040906, end: 20040924
  5. PHENPROCOUMON [Suspect]
     Dosage: ORAL
     Route: 048
  6. LISINOPRIL [Suspect]
     Dosage: ORAL
     Route: 048
  7. ATORVASTATIN [Concomitant]
  8. PANTOPRAZOLE [Concomitant]
  9. HUMAN INSULIN [Concomitant]
  10. PYRIDOXINE HCL [Concomitant]
  11. CYANOCOBALAMIN [Concomitant]
  12. THIAMINE [Concomitant]

REACTIONS (1)
  - CUTANEOUS VASCULITIS [None]
